FAERS Safety Report 9324705 (Version 1)
Quarter: 2013Q2

REPORT INFORMATION
  Report Type: Spontaneous
  Country: FR (occurrence: FR)
  Receive Date: 20130603
  Receipt Date: 20130603
  Transmission Date: 20140414
  Serious: Yes (Other)
  Sender: FDA-Public Use
  Company Number: FR-GLAXOSMITHKLINE-B0896180A

PATIENT
  Sex: Female

DRUGS (2)
  1. LAMICTAL [Suspect]
     Indication: EPILEPSY
     Dosage: 200MG PER DAY
     Route: 048
     Dates: start: 2003, end: 2013
  2. EPITOMAX [Suspect]
     Indication: EPILEPSY
     Route: 048
     Dates: start: 2003

REACTIONS (4)
  - Encephalopathy [Recovering/Resolving]
  - Mental impairment [Recovering/Resolving]
  - Bradyphrenia [Recovering/Resolving]
  - Hyperammonaemia [Recovering/Resolving]
